FAERS Safety Report 25301348 (Version 1)
Quarter: 2025Q2

REPORT INFORMATION
  Report Type: Spontaneous
  Country: US (occurrence: None)
  Receive Date: 20250511
  Receipt Date: 20250511
  Transmission Date: 20250716
  Serious: No
  Sender: FDA-CTU
  Company Number: None

PATIENT
  Sex: Male

DRUGS (3)
  1. VYNDAQEL [Suspect]
     Active Substance: TAFAMIDIS MEGLUMINE
     Indication: Amyloidosis
     Dosage: FREQUENCY : DAILY;?
     Route: 048
     Dates: start: 20250226
  2. VYNDAQEL [Suspect]
     Active Substance: TAFAMIDIS MEGLUMINE
     Indication: Diverticulitis
  3. VYNDAQEL [Suspect]
     Active Substance: TAFAMIDIS MEGLUMINE
     Indication: Diverticulitis

REACTIONS (1)
  - Cough [None]
